FAERS Safety Report 5862141-1 (Version None)
Quarter: 2008Q3

REPORT INFORMATION
  Report Type: 
  Country: None (occurrence: None)
  Receive Date: 20080828
  Receipt Date: 20080206
  Transmission Date: 20090109
  Serious: No
  Sender: FDA-Public Use
  Company Number: A0707816A

PATIENT
  Age: 2 Year
  Sex: Female

DRUGS (1)
  1. ACYCLOVIR [Suspect]
     Route: 065

REACTIONS (1)
  - HERPES SIMPLEX [None]
